FAERS Safety Report 8197935-3 (Version None)
Quarter: 2012Q1

REPORT INFORMATION
  Report Type: 
  Country: None (occurrence: None)
  Receive Date: 20120309
  Receipt Date: 20111214
  Transmission Date: 20120608
  Serious: No
  Sender: FDA-Public Use
  Company Number: US-AMGEN-USASP2011066904

PATIENT
  Age: 64 Year
  Sex: Female

DRUGS (4)
  1. FASLODEX [Concomitant]
  2. XELODA [Concomitant]
  3. XGEVA [Suspect]
     Indication: BREAST CANCER METASTATIC
     Dosage: 120 MG, Q4WK
  4. ZOMETA [Concomitant]

REACTIONS (3)
  - NAUSEA [None]
  - DIZZINESS [None]
  - VOMITING [None]
